FAERS Safety Report 22216964 (Version 1)
Quarter: 2023Q2

REPORT INFORMATION
  Report Type: Other
  Country: CN (occurrence: None)
  Receive Date: 20230417
  Receipt Date: 20230417
  Transmission Date: 20230721
  Serious: Yes (Other)
  Sender: FDA-Public Use
  Company Number: CN-ROCHE-3328427

PATIENT
  Age: 50 Year
  Sex: Female

DRUGS (32)
  1. BEVACIZUMAB [Suspect]
     Active Substance: BEVACIZUMAB
     Indication: Lung adenocarcinoma
     Dosage: FOR 5 CYCLES
     Route: 065
  2. BEVACIZUMAB [Suspect]
     Active Substance: BEVACIZUMAB
     Dosage: 4 CYCLES OF BEVACIZUMAB + TRASTUZUMAB + NEDAPLATIN EVERY 3 WEEKS
     Route: 065
  3. BEVACIZUMAB [Suspect]
     Active Substance: BEVACIZUMAB
     Route: 065
     Dates: start: 20190216
  4. BEVACIZUMAB [Suspect]
     Active Substance: BEVACIZUMAB
     Dosage: TRASTUZUMAB + PERTUZUMAB + BEVACIZUMAB + NEDAPLATIN FOR 2 CYCLES
     Route: 065
     Dates: start: 2020
  5. PEMETREXED DISODIUM [Suspect]
     Active Substance: PEMETREXED DISODIUM
     Indication: Lung adenocarcinoma
     Dosage: VD, ON DAY 1
     Route: 065
     Dates: start: 20180721
  6. CARBOPLATIN [Suspect]
     Active Substance: CARBOPLATIN
     Indication: Lung adenocarcinoma
     Dosage: FOR 5 CYCLES
     Route: 065
  7. PACLITAXEL [Suspect]
     Active Substance: PACLITAXEL
     Indication: Lung adenocarcinoma
     Route: 065
  8. TRASTUZUMAB [Suspect]
     Active Substance: TRASTUZUMAB
     Indication: Lung adenocarcinoma
     Route: 065
  9. TRASTUZUMAB [Suspect]
     Active Substance: TRASTUZUMAB
     Dosage: 4 CYCLES OF BEVACIZUMAB + TRASTUZUMAB + NEDAPLATIN EVERY 3 WEEKS
     Route: 065
  10. TRASTUZUMAB [Suspect]
     Active Substance: TRASTUZUMAB
     Route: 065
     Dates: start: 20190216
  11. TRASTUZUMAB [Suspect]
     Active Substance: TRASTUZUMAB
     Dosage: TRASTUZUMAB + PERTUZUMAB + BEVACIZUMAB + NEDAPLATIN FOR 2 CYCLES
     Route: 065
     Dates: start: 2020
  12. NEDAPLATIN [Suspect]
     Active Substance: NEDAPLATIN
     Indication: Lung adenocarcinoma
     Route: 065
     Dates: start: 2018
  13. NEDAPLATIN [Suspect]
     Active Substance: NEDAPLATIN
     Dosage: 4 CYCLES OF BEVACIZUMAB + TRASTUZUMAB + NEDAPLATIN EVERY 3 WEEKS
     Route: 065
  14. NEDAPLATIN [Suspect]
     Active Substance: NEDAPLATIN
     Route: 065
     Dates: start: 20190216
  15. NEDAPLATIN [Suspect]
     Active Substance: NEDAPLATIN
     Dosage: TRASTUZUMAB + PERTUZUMAB + BEVACIZUMAB + NEDAPLATIN FOR 2 CYCLES
     Route: 065
     Dates: start: 2020
  16. POZIOTINIB [Suspect]
     Active Substance: POZIOTINIB
     Indication: Lung adenocarcinoma
     Dosage: FOR 4 CYCLES
     Route: 065
     Dates: start: 2019
  17. OLAPARIB [Suspect]
     Active Substance: OLAPARIB
     Indication: Lung adenocarcinoma
     Dosage: TDM-1 + OLAPARIB + BEVACIZUMAB.
     Route: 065
     Dates: start: 2020
  18. PYROTINIB [Concomitant]
     Active Substance: PYROTINIB
     Indication: Lung adenocarcinoma
     Dosage: FOR ONE CYCLE
     Dates: start: 20191212
  19. PYROTINIB [Concomitant]
     Active Substance: PYROTINIB
     Dosage: TDM-1 COMBINED WITH PYROTINIB FOR ONE CYCLE
     Dates: start: 2020
  20. NIVOLUMAB [Concomitant]
     Active Substance: NIVOLUMAB
     Indication: Lung adenocarcinoma
     Dosage: FOR ONE CYCLE
     Dates: start: 20191212
  21. CATEQUENTINIB [Concomitant]
     Active Substance: CATEQUENTINIB
     Indication: Lung adenocarcinoma
     Dosage: FOR ANOTHER 2 CYCLES
     Dates: start: 20191212
  22. ADO-TRASTUZUMAB EMTANSINE [Concomitant]
     Active Substance: ADO-TRASTUZUMAB EMTANSINE
     Indication: Lung adenocarcinoma
     Dates: start: 202007
  23. ADO-TRASTUZUMAB EMTANSINE [Concomitant]
     Active Substance: ADO-TRASTUZUMAB EMTANSINE
     Dosage: TDM-1 + IMMUNOTHERAPY WITH NK CELLS (100 ML) ONCE A WEEK
     Dates: start: 2020
  24. THROMBOPOIETIN [Concomitant]
     Active Substance: THROMBOPOIETIN
     Indication: Lung adenocarcinoma
  25. PEGYLATED RECOMBINANT HUMAN GRANULOCYTE STIMULATING FACTOR NEEDLE (PEG [Concomitant]
     Indication: Lung adenocarcinoma
  26. FAM-TRASTUZUMAB DERUXTECAN-NXKI [Concomitant]
     Active Substance: FAM-TRASTUZUMAB DERUXTECAN-NXKI
     Indication: Lung adenocarcinoma
     Dates: start: 20201007
  27. FAM-TRASTUZUMAB DERUXTECAN-NXKI [Concomitant]
     Active Substance: FAM-TRASTUZUMAB DERUXTECAN-NXKI
     Dates: start: 2020
  28. FAM-TRASTUZUMAB DERUXTECAN-NXKI [Concomitant]
     Active Substance: FAM-TRASTUZUMAB DERUXTECAN-NXKI
     Dates: start: 20210416
  29. PERTUZUMAB [Concomitant]
     Active Substance: PERTUZUMAB
     Indication: Lung adenocarcinoma
     Dosage: ONE CYCLE OF BEVACIZUMAB + TRASTUZUMAB + PERTUZUMAB FOR CONTINUATION MAINTENANCE THERAPY
     Route: 065
  30. PERTUZUMAB [Concomitant]
     Active Substance: PERTUZUMAB
     Dosage: TRASTUZUMAB + PERTUZUMAB + BEVACIZUMAB + NEDAPLATIN FOR 2 CYCLES
     Route: 065
     Dates: start: 2020
  31. NK CELLS (INVESTIGATIONAL PRODUCT) (UNK INGREDIENTS) [Concomitant]
  32. PLATELETS [Concomitant]
     Active Substance: HUMAN PLATELET, ALLOGENIC

REACTIONS (4)
  - Myelosuppression [Unknown]
  - Disease progression [Not Recovered/Not Resolved]
  - Paronychia [Unknown]
  - Mouth ulceration [Unknown]

NARRATIVE: CASE EVENT DATE: 20180101
